FAERS Safety Report 10587290 (Version 1)
Quarter: 2014Q4

REPORT INFORMATION
  Report Type: Report from Study
  Country: CA (occurrence: CA)
  Receive Date: 20141117
  Receipt Date: 20141117
  Transmission Date: 20150529
  Serious: Yes (Hospitalization, Other)
  Sender: FDA-Public Use
  Company Number: CA-ROCHE-1488552

PATIENT
  Age: 58 Year
  Sex: Male
  Weight: 74 kg

DRUGS (16)
  1. RITUXAN [Suspect]
     Active Substance: RITUXIMAB
     Indication: IMMUNE THROMBOCYTOPENIC PURPURA
  2. RITUXAN [Suspect]
     Active Substance: RITUXIMAB
     Indication: ANTIPHOSPHOLIPID SYNDROME
  3. METHYLPREDNISOLONE. [Concomitant]
     Active Substance: METHYLPREDNISOLONE
     Indication: PREMEDICATION
     Route: 042
  4. SEPTRA STUDY DRUG [Concomitant]
  5. RANITIDINE [Concomitant]
     Active Substance: RANITIDINE\RANITIDINE HYDROCHLORIDE
  6. RITUXAN [Suspect]
     Active Substance: RITUXIMAB
     Indication: AUTOIMMUNE HAEMOLYTIC ANAEMIA
     Dosage: DATE OF PREVIOS DOSE ADMINISTERED: 23/JUL/2013.
     Route: 042
  7. CELLCEPT [Suspect]
     Active Substance: MYCOPHENOLATE MOFETIL\MYCOPHENOLATE MOFETIL HYDROCHLORIDE
     Indication: PRODUCT USED FOR UNKNOWN INDICATION
     Route: 065
  8. PULMICORT TURBUHALER [Concomitant]
     Active Substance: BUDESONIDE
  9. SPIRIVA [Concomitant]
     Active Substance: TIOTROPIUM BROMIDE MONOHYDRATE
  10. DIPHENHYDRAMINE HYDROCHLORIDE. [Concomitant]
     Active Substance: DIPHENHYDRAMINE HYDROCHLORIDE
     Indication: PREMEDICATION
     Route: 048
  11. OXYGEN. [Concomitant]
     Active Substance: OXYGEN
     Dosage: 3L PER MINUTE VIA NASAL PRONGS
     Route: 065
  12. RITUXAN [Suspect]
     Active Substance: RITUXIMAB
     Indication: MYASTHENIA GRAVIS
  13. ATROVENT [Concomitant]
     Active Substance: IPRATROPIUM BROMIDE
  14. PREDNISONE. [Concomitant]
     Active Substance: PREDNISONE
  15. ACETAMINOPHEN. [Concomitant]
     Active Substance: ACETAMINOPHEN
     Indication: PREMEDICATION
     Route: 048
  16. RITUXAN [Suspect]
     Active Substance: RITUXIMAB
     Indication: THYMOMA

REACTIONS (26)
  - Concussion [Unknown]
  - Heart rate decreased [Unknown]
  - Rotator cuff syndrome [Unknown]
  - Nasopharyngitis [Not Recovered/Not Resolved]
  - Platelet count decreased [Not Recovered/Not Resolved]
  - Fall [Unknown]
  - Upper respiratory tract infection [Not Recovered/Not Resolved]
  - Bronchitis [Recovered/Resolved]
  - Herpes zoster [Recovered/Resolved]
  - Off label use [Unknown]
  - Immunoglobulins decreased [Unknown]
  - Syncope [Unknown]
  - Subdural haematoma [Unknown]
  - Speech disorder [Recovering/Resolving]
  - Heart rate increased [Not Recovered/Not Resolved]
  - Implant site pain [Unknown]
  - Cardiac pacemaker replacement [Unknown]
  - White blood cell count decreased [Not Recovered/Not Resolved]
  - Disturbance in attention [Unknown]
  - Onychomycosis [Unknown]
  - Pneumonia [Unknown]
  - Splenomegaly [Not Recovered/Not Resolved]
  - Pneumonia [Unknown]
  - Hypotension [Recovering/Resolving]
  - Dyspnoea [Recovering/Resolving]
  - Vision blurred [Not Recovered/Not Resolved]

NARRATIVE: CASE EVENT DATE: 200905
